FAERS Safety Report 5350269-4 (Version None)
Quarter: 2007Q2

REPORT INFORMATION
  Report Type: 
  Country: None (occurrence: None)
  Receive Date: 20070516
  Receipt Date: 20061220
  Transmission Date: 20071010
  Serious: Yes (Other)
  Sender: FDA-Public Use
  Company Number: 2006155330

PATIENT
  Age: 28 Year
  Sex: Female

DRUGS (2)
  1. DEPO-PROVERA [Suspect]
     Dosage: (1ST INJECTION) ; (LAST INJECTION) : INTRAMUSCULAR
     Route: 030
     Dates: start: 19961001, end: 19961001
  2. DEPO-PROVERA [Suspect]
     Dosage: (1ST INJECTION) ; (LAST INJECTION) : INTRAMUSCULAR
     Route: 030
     Dates: start: 20050801, end: 20050801

REACTIONS (1)
  - BONE DENSITY DECREASED [None]
